FAERS Safety Report 12665827 (Version 1)
Quarter: 2016Q3

REPORT INFORMATION
  Report Type: Report from Study
  Country: JP (occurrence: JP)
  Receive Date: 20160818
  Receipt Date: 20160818
  Transmission Date: 20161109
  Serious: Yes (Hospitalization)
  Sender: FDA-Public Use
  Company Number: JP-JNJFOC-20160201246

PATIENT
  Age: 42 Year
  Sex: Female
  Weight: 55 kg

DRUGS (3)
  1. DEXAMETHASONE. [Concomitant]
     Active Substance: DEXAMETHASONE
     Indication: PREMEDICATION
     Route: 065
     Dates: start: 20160115
  2. YONDELIS [Suspect]
     Active Substance: TRABECTEDIN
     Indication: EXTRASKELETAL MYXOID CHONDROSARCOMA
     Route: 041
     Dates: start: 20160115
  3. YONDELIS [Suspect]
     Active Substance: TRABECTEDIN
     Indication: EXTRASKELETAL MYXOID CHONDROSARCOMA
     Route: 041
     Dates: start: 20160212

REACTIONS (2)
  - Bone marrow failure [Recovered/Resolved]
  - Hepatic function abnormal [Recovered/Resolved]

NARRATIVE: CASE EVENT DATE: 20160118
